FAERS Safety Report 20826758 (Version 2)
Quarter: 2022Q2

REPORT INFORMATION
  Report Type: Report from Study
  Country: CA (occurrence: CA)
  Receive Date: 20220513
  Receipt Date: 20220519
  Transmission Date: 20220721
  Serious: Yes (Other)
  Sender: FDA-Public Use
  Company Number: CA-SA-SAC20220426000442

PATIENT
  Age: 53 Year
  Sex: Female

DRUGS (8)
  1. TERIFLUNOMIDE [Suspect]
     Active Substance: TERIFLUNOMIDE
     Indication: Relapsing-remitting multiple sclerosis
     Dosage: 14 MG, QD
     Route: 048
     Dates: start: 20220216
  2. VITAMIN D NOS [Concomitant]
     Active Substance: VITAMIN D NOS
     Dosage: 50 MG
     Route: 065
  3. VITAMIN C [Concomitant]
     Active Substance: ASCORBIC ACID
     Dosage: 40 MG
     Route: 065
  4. VITAMIN C [Concomitant]
     Active Substance: ASCORBIC ACID
  5. TRAZODONE [Concomitant]
     Active Substance: TRAZODONE HYDROCHLORIDE
     Dosage: 50 MG
     Route: 065
  6. PROTOPIC [Concomitant]
     Active Substance: TACROLIMUS
     Dosage: 40 MG, PRN
  7. MOMETASONE [Concomitant]
     Active Substance: MOMETASONE
     Dosage: 40 MG, PRN
     Route: 065
  8. VIADERM KC [Concomitant]
     Dosage: UNK

REACTIONS (21)
  - Thrombosis [Unknown]
  - Gastrooesophageal reflux disease [Recovering/Resolving]
  - Eructation [Recovering/Resolving]
  - Nausea [Recovering/Resolving]
  - Diarrhoea [Recovering/Resolving]
  - Flatulence [Recovering/Resolving]
  - Regurgitation [Unknown]
  - Chest discomfort [Unknown]
  - COVID-19 [Recovering/Resolving]
  - Ageusia [Recovering/Resolving]
  - Nasal congestion [Recovering/Resolving]
  - Throat irritation [Unknown]
  - Productive cough [Recovering/Resolving]
  - Pain [Recovering/Resolving]
  - Malaise [Recovering/Resolving]
  - Headache [Recovered/Resolved]
  - Oropharyngeal pain [Recovering/Resolving]
  - Pyrexia [Recovering/Resolving]
  - Paraesthesia [Recovering/Resolving]
  - Hypoaesthesia [Recovering/Resolving]
  - Visual impairment [Recovering/Resolving]

NARRATIVE: CASE EVENT DATE: 20220320
